FAERS Safety Report 21243596 (Version 1)
Quarter: 2022Q3

REPORT INFORMATION
  Report Type: Spontaneous
  Country: US (occurrence: US)
  Receive Date: 20220823
  Receipt Date: 20220823
  Transmission Date: 20221027
  Serious: Yes (Other)
  Sender: FDA-Public Use
  Company Number: US-JNJFOC-20220826947

PATIENT
  Sex: Male

DRUGS (2)
  1. SPRAVATO [Suspect]
     Active Substance: ESKETAMINE
     Indication: Product used for unknown indication
  2. SPRAVATO [Suspect]
     Active Substance: ESKETAMINE

REACTIONS (5)
  - Motor neurone disease [Unknown]
  - Urinary retention [Unknown]
  - Weight decreased [Unknown]
  - Dissociation [Recovered/Resolved]
  - Sedation [Recovered/Resolved]
